FAERS Safety Report 8814153 (Version 1)
Quarter: 2012Q4

REPORT INFORMATION
  Report Type: 
  Country: US (occurrence: US)
  Receive Date: 20120928
  Receipt Date: 20120928
  Transmission Date: 20130627
  Serious: Yes (Other)
  Sender: FDA-Public Use
  Company Number: US-SANOFI-AVENTIS-2012SA069052

PATIENT
  Sex: Female

DRUGS (1)
  1. LANTUS [Suspect]
     Route: 058

REACTIONS (2)
  - Pulmonary haemorrhage [Recovering/Resolving]
  - Diabetes mellitus inadequate control [Not Recovered/Not Resolved]
